FAERS Safety Report 6526882-5 (Version None)
Quarter: 2010Q1

REPORT INFORMATION
  Report Type: 
  Country: None (occurrence: None)
  Receive Date: 20100105
  Receipt Date: 20091228
  Transmission Date: 20100710
  Serious: Yes (Hospitalization)
  Sender: FDA-Public Use
  Company Number: DK-JNJFOC-20091200228

PATIENT
  Sex: Male
  Weight: 99 kg

DRUGS (5)
  1. REMICADE [Suspect]
     Route: 042
  2. REMICADE [Suspect]
     Indication: PSORIASIS
     Dosage: 5 DOSES
     Route: 042
  3. METHOTREXATE [Concomitant]
  4. PYRIDOXINE [Concomitant]
  5. ISONIAZID [Concomitant]
     Route: 048

REACTIONS (6)
  - CHILLS [None]
  - CYANOSIS [None]
  - DYSPNOEA [None]
  - HYPERTHERMIA [None]
  - INFUSION RELATED REACTION [None]
  - MALAISE [None]
